FAERS Safety Report 24848171 (Version 1)
Quarter: 2025Q1

REPORT INFORMATION
  Report Type: Spontaneous
  Country: US (occurrence: US)
  Receive Date: 20250116
  Receipt Date: 20250116
  Transmission Date: 20250408
  Serious: No
  Sender: RICONPHARMA LLC
  Company Number: US-RICONPHARMA, LLC-2024RIC000040

PATIENT

DRUGS (4)
  1. SCOPOLAMINE [Suspect]
     Active Substance: SCOPOLAMINE
     Indication: Nausea
     Route: 062
  2. TRAMADOL [Concomitant]
     Active Substance: TRAMADOL
     Indication: Back pain
     Route: 065
  3. OMEPRAZOLE [Concomitant]
     Active Substance: OMEPRAZOLE
     Indication: Product used for unknown indication
     Route: 065
  4. TAMSULOSIN [Concomitant]
     Active Substance: TAMSULOSIN
     Indication: Product used for unknown indication
     Route: 065

REACTIONS (6)
  - Abdominal discomfort [Unknown]
  - Feeling abnormal [Not Recovered/Not Resolved]
  - Malaise [Unknown]
  - Nausea [Unknown]
  - Drug ineffective [Unknown]
  - Product adhesion issue [Unknown]
